FAERS Safety Report 9136741 (Version 1)
Quarter: 2013Q1

REPORT INFORMATION
  Report Type: Spontaneous
  Country: US (occurrence: US)
  Receive Date: 20130304
  Receipt Date: 20130304
  Transmission Date: 20140127
  Serious: No
  Sender: FDA-Public Use
  Company Number: US-ABBOTT-12P-163-0947324-00

PATIENT
  Sex: Male
  Weight: 104.42 kg

DRUGS (2)
  1. ANDROGEL 1% [Suspect]
     Indication: BLOOD TESTOSTERONE DECREASED
     Dosage: PACKET UNKNOWN GRAMS
     Dates: start: 201203
  2. VITAMIN FOR PROSTATE [Concomitant]
     Indication: PROSTATIC DISORDER

REACTIONS (2)
  - Arthralgia [Not Recovered/Not Resolved]
  - Joint stiffness [Not Recovered/Not Resolved]
